FAERS Safety Report 25370591 (Version 2)
Quarter: 2025Q2

REPORT INFORMATION
  Report Type: Report from Study
  Country: CN (occurrence: CN)
  Receive Date: 20250528
  Receipt Date: 20250606
  Transmission Date: 20250717
  Serious: Yes (Hospitalization)
  Sender: EISAI
  Company Number: CN-Eisai Medical Research-EC-2023-148098

PATIENT
  Age: 69 Year
  Sex: Male
  Weight: 50 kg

DRUGS (45)
  1. LENVATINIB [Suspect]
     Active Substance: LENVATINIB
     Indication: Hepatocellular carcinoma
     Dates: start: 20230517, end: 20230709
  2. LENVATINIB [Suspect]
     Active Substance: LENVATINIB
     Dates: start: 20230710, end: 20230716
  3. DURVALUMAB [Suspect]
     Active Substance: DURVALUMAB
     Indication: Hepatocellular carcinoma
     Dates: start: 20230517, end: 20230517
  4. TREMELIMUMAB [Suspect]
     Active Substance: TREMELIMUMAB
     Indication: Hepatocellular carcinoma
     Dates: start: 20230517, end: 20230517
  5. DROTAVERINE HYDROCHLORIDE [Suspect]
     Active Substance: DROTAVERINE HYDROCHLORIDE
     Indication: Upper gastrointestinal haemorrhage
     Dates: start: 20230716, end: 20230716
  6. DROTAVERINE HYDROCHLORIDE [Suspect]
     Active Substance: DROTAVERINE HYDROCHLORIDE
     Indication: Abdominal pain
     Dates: start: 20230823, end: 20230823
  7. DROTAVERINE HYDROCHLORIDE [Suspect]
     Active Substance: DROTAVERINE HYDROCHLORIDE
     Indication: Abdominal pain
     Dates: start: 20230826, end: 20230826
  8. ENTECAVIR [Concomitant]
     Active Substance: ENTECAVIR
     Indication: Hepatitis B
  9. METOPROLOL [Concomitant]
     Active Substance: METOPROLOL
     Indication: Hypertension
  10. ZINC JUNIOR [Concomitant]
     Indication: Prophylaxis
     Dates: start: 20230510
  11. AMLODIPINE BESYLATE [Concomitant]
     Active Substance: AMLODIPINE BESYLATE
     Indication: Hypertension
  12. PANTOPRAZOLE SODIUM [Concomitant]
     Active Substance: PANTOPRAZOLE SODIUM
     Indication: Prophylaxis
  13. BICYCLOL [Concomitant]
     Active Substance: BICYCLOL
  14. LACTULOSE [Concomitant]
     Active Substance: LACTULOSE
  15. METOPROLOL [Concomitant]
     Active Substance: METOPROLOL
  16. CEFOTAXIME SODIUM [Concomitant]
     Active Substance: CEFOTAXIME SODIUM
     Dates: start: 20230526, end: 20230529
  17. DOLASETRON MESYLATE [Concomitant]
     Active Substance: DOLASETRON MESYLATE
     Dates: start: 20230526, end: 20230526
  18. ESOMEPRAZOLE SODIUM [Concomitant]
     Active Substance: ESOMEPRAZOLE SODIUM
     Dates: start: 20230526, end: 20230719
  19. PHOSPHOLIPID [Concomitant]
     Active Substance: PHOSPHOLIPID
     Dates: start: 20230526, end: 20230602
  20. POTASSIUM ASPARTATE [Concomitant]
     Active Substance: POTASSIUM ASPARTATE
     Dates: start: 20230526, end: 20230528
  21. VITAMIN B6 [Concomitant]
     Active Substance: PYRIDOXINE HYDROCHLORIDE
     Dates: start: 20230526, end: 20230528
  22. IBUPROFEN [Concomitant]
     Active Substance: IBUPROFEN
     Dates: start: 20230527, end: 20230530
  23. DEXIBUPROFEN [Concomitant]
     Active Substance: DEXIBUPROFEN
     Dates: start: 20230528, end: 20230528
  24. CEFOPERAZONE SODIUM [Concomitant]
     Active Substance: CEFOPERAZONE SODIUM
     Dates: start: 20230529, end: 20230605
  25. BICYCLOL [Concomitant]
     Active Substance: BICYCLOL
  26. LACTULOSE [Concomitant]
     Active Substance: LACTULOSE
  27. METHYLPREDNISOLONE SODIUM SUCCINATE [Concomitant]
     Active Substance: METHYLPREDNISOLONE SODIUM SUCCINATE
     Dates: start: 20230529, end: 20230806
  28. POTASSIUM CHLORIDE [Concomitant]
     Active Substance: POTASSIUM CHLORIDE
     Dates: start: 20230531, end: 20230603
  29. COMPOUND GLYCYRRHIZA [Concomitant]
     Dates: start: 20230601, end: 20230604
  30. MONTELUKAST SODIUM [Concomitant]
     Active Substance: MONTELUKAST SODIUM
     Dates: start: 20230601, end: 20230605
  31. ACETYLCYSTEINE [Concomitant]
     Active Substance: ACETYLCYSTEINE
     Dates: start: 20230602, end: 20230613
  32. ACETAMINOPHEN [Concomitant]
     Active Substance: ACETAMINOPHEN
     Dates: start: 20230603, end: 20230605
  33. AMINOPHYLLINE\CHLORPHENIRAMINE MALEATE\METHOXYPHENAMINE HYDROCHLORIDE\ [Concomitant]
     Active Substance: AMINOPHYLLINE\CHLORPHENIRAMINE MALEATE\METHOXYPHENAMINE HYDROCHLORIDE\NOSCAPINE
     Dates: start: 20230604, end: 20230611
  34. METHYLPREDNISOLONE [Concomitant]
     Active Substance: METHYLPREDNISOLONE
     Dates: start: 20230606, end: 20230706
  35. CALCITRIOL [Concomitant]
     Active Substance: CALCITRIOL
     Dates: start: 20230612, end: 20230716
  36. POLYETHYLENE GLYCOL [Concomitant]
     Active Substance: POLYETHYLENE GLYCOL
     Dates: start: 20230612, end: 20230622
  37. ROSUVASTATIN CALCIUM [Concomitant]
     Active Substance: ROSUVASTATIN CALCIUM
     Dates: start: 20230613, end: 20230716
  38. MOXIFLOXACIN HYDROCHLORIDE [Concomitant]
     Active Substance: MOXIFLOXACIN HYDROCHLORIDE
     Dates: start: 20230628, end: 20230703
  39. AMINOMETHYLBENZOIC ACID [Concomitant]
     Active Substance: AMINOMETHYLBENZOIC ACID
     Dates: start: 20230716, end: 20230717
  40. DROTAVERINE HYDROCHLORIDE [Concomitant]
     Active Substance: DROTAVERINE HYDROCHLORIDE
     Dates: start: 20230716, end: 20230716
  41. ETHAMSYLATE [Concomitant]
     Active Substance: ETHAMSYLATE
     Dates: start: 20230716, end: 20230717
  42. NOREPINEPHRINE BITARTRATE [Concomitant]
     Active Substance: NOREPINEPHRINE BITARTRATE
     Dates: start: 20230716, end: 20230717
  43. SOMATOSTATIN [Concomitant]
     Active Substance: SOMATOSTATIN
     Dates: start: 20230716, end: 20230718
  44. VITAMIN K1 [Concomitant]
     Active Substance: PHYTONADIONE
     Dates: start: 20230716, end: 20230717
  45. PHLOROGLUCINOL [Concomitant]
     Active Substance: PHLOROGLUCINOL
     Dates: start: 20230818, end: 20230818

REACTIONS (3)
  - Pneumonia bacterial [Not Recovered/Not Resolved]
  - Upper gastrointestinal haemorrhage [Recovered/Resolved]
  - Hypotension [Recovered/Resolved]

NARRATIVE: CASE EVENT DATE: 20230627
